FAERS Safety Report 24229802 (Version 1)
Quarter: 2024Q3

REPORT INFORMATION
  Report Type: Spontaneous
  Country: HR (occurrence: HR)
  Receive Date: 20240820
  Receipt Date: 20240820
  Transmission Date: 20241017
  Serious: Yes (Other)
  Sender: TEVA
  Company Number: None

PATIENT
  Age: 51 Year
  Sex: Female

DRUGS (4)
  1. AMOXICILLIN\CLAVULANIC ACID [Suspect]
     Active Substance: AMOXICILLIN\CLAVULANIC ACID
     Indication: Localised infection
     Dosage: DF=1 FILM-COATED TABLET CONTAINS 875 MG AMOXICILLIN IN THE FORM OF AMOXICILLIN TRIHYDRATE AND 125...
     Route: 048
     Dates: start: 20240712, end: 20240713
  2. NORMABEL [Concomitant]
     Active Substance: DIAZEPAM
     Indication: Sciatica
     Route: 048
  3. CLINDAMYCIN [Suspect]
     Active Substance: CLINDAMYCIN
     Indication: Wound
     Route: 048
     Dates: start: 20240711, end: 20240712
  4. Ketonal [Concomitant]
     Indication: Sciatica
     Route: 048

REACTIONS (3)
  - Rash pruritic [Recovering/Resolving]
  - Rash maculo-papular [Recovering/Resolving]
  - Dermatitis [Recovering/Resolving]

NARRATIVE: CASE EVENT DATE: 20240712
